FAERS Safety Report 20096083 (Version 4)
Quarter: 2023Q4

REPORT INFORMATION
  Report Type: Other
  Country: JP (occurrence: JP)
  Receive Date: 20211122
  Receipt Date: 20231229
  Transmission Date: 20240109
  Serious: Yes (Hospitalization, Other)
  Sender: FDA-Public Use
  Company Number: JP-CHUGAI-A2019040964ROCHE

PATIENT
  Age: 76 Year
  Sex: Male
  Weight: 54 kg

DRUGS (18)
  1. GAZYVA [Suspect]
     Active Substance: OBINUTUZUMAB
     Indication: Follicular lymphoma
     Route: 041
     Dates: start: 20190226, end: 20190313
  2. GAZYVA [Suspect]
     Active Substance: OBINUTUZUMAB
     Route: 041
     Dates: start: 20190327, end: 20190717
  3. GAZYVA [Suspect]
     Active Substance: OBINUTUZUMAB
     Route: 041
     Dates: start: 20190911, end: 20190911
  4. GAZYVA [Suspect]
     Active Substance: OBINUTUZUMAB
     Route: 041
     Dates: start: 20191106, end: 20191106
  5. GAZYVA [Suspect]
     Active Substance: OBINUTUZUMAB
     Route: 041
     Dates: start: 20200108, end: 20200108
  6. GAZYVA [Suspect]
     Active Substance: OBINUTUZUMAB
     Route: 041
     Dates: start: 20200304, end: 20200304
  7. GAZYVA [Suspect]
     Active Substance: OBINUTUZUMAB
     Route: 041
     Dates: start: 20200513, end: 20200513
  8. GAZYVA [Suspect]
     Active Substance: OBINUTUZUMAB
     Route: 041
     Dates: start: 20200708, end: 20200708
  9. BENDAMUSTINE HYDROCHLORIDE [Suspect]
     Active Substance: BENDAMUSTINE HYDROCHLORIDE
     Indication: Follicular lymphoma
     Dosage: 90 MILLIGRAM/SQ. METER
     Route: 041
     Dates: start: 20190227, end: 20190228
  10. BENDAMUSTINE HYDROCHLORIDE [Suspect]
     Active Substance: BENDAMUSTINE HYDROCHLORIDE
     Dosage: 90 MILLIGRAM/SQ. METER
     Route: 041
     Dates: start: 20190328, end: 20190329
  11. BENDAMUSTINE HYDROCHLORIDE [Suspect]
     Active Substance: BENDAMUSTINE HYDROCHLORIDE
     Dosage: 90 MILLIGRAM/SQ. METER
     Route: 041
     Dates: start: 20190425, end: 20190426
  12. BENDAMUSTINE HYDROCHLORIDE [Suspect]
     Active Substance: BENDAMUSTINE HYDROCHLORIDE
     Dosage: 90 MILLIGRAM/SQ. METER
     Route: 041
     Dates: start: 20190523, end: 20190524
  13. BENDAMUSTINE HYDROCHLORIDE [Suspect]
     Active Substance: BENDAMUSTINE HYDROCHLORIDE
     Dosage: 90 MILLIGRAM/SQ. METER
     Route: 041
     Dates: start: 20190620, end: 20190621
  14. BENDAMUSTINE HYDROCHLORIDE [Suspect]
     Active Substance: BENDAMUSTINE HYDROCHLORIDE
     Dosage: 90 MILLIGRAM/SQ. METER
     Route: 041
     Dates: start: 20190718, end: 20190719
  15. DEXAMETHASONE SODIUM METASULFOBENZOATE [Concomitant]
     Active Substance: DEXAMETHASONE SODIUM METASULFOBENZOATE
     Dosage: DOSAGE IS UNCERTAIN.?DRUG REPORTED AS DEX
     Route: 065
  16. SULFAMETHOXAZOLE\TRIMETHOPRIM [Concomitant]
     Active Substance: SULFAMETHOXAZOLE\TRIMETHOPRIM
     Dosage: 1 DOSAGE FORM, AFTER BREAKFAST
     Route: 048
     Dates: start: 20190226
  17. ACYCLOVIR [Concomitant]
     Active Substance: ACYCLOVIR
     Dosage: 1 DOSAGE FORM
     Route: 048
     Dates: start: 20190226
  18. BARACLUDE [Concomitant]
     Active Substance: ENTECAVIR
     Dosage: 1 DOSAGE FORM, QOD
     Route: 048
     Dates: start: 20190408

REACTIONS (3)
  - Hepatocellular carcinoma [Recovering/Resolving]
  - Hepatitis B [Recovered/Resolved]
  - Pneumonia [Recovered/Resolved]

NARRATIVE: CASE EVENT DATE: 20190327
